FAERS Safety Report 7746745-7 (Version None)
Quarter: 2011Q3

REPORT INFORMATION
  Report Type: 
  Country: None (occurrence: None)
  Receive Date: 20110913
  Receipt Date: 20110830
  Transmission Date: 20111222
  Serious: Yes (Hospitalization)
  Sender: FDA-Public Use
  Company Number: BR-MEDIMMUNE-MEDI-0011527

PATIENT
  Sex: Male
  Weight: 14 kg

DRUGS (13)
  1. ATROVENT [Concomitant]
     Route: 048
     Dates: start: 20091106
  2. DORAVIL [Concomitant]
     Route: 048
     Dates: start: 20110828
  3. SYNAGIS [Suspect]
     Indication: BRONCHOPULMONARY DYSPLASIA
     Route: 030
     Dates: start: 20100418, end: 20100418
  4. FENOTEROL [Concomitant]
  5. ACETYLCYSTEINE [Concomitant]
     Route: 048
  6. TITLIS [Concomitant]
     Indication: VITAMIN SUPPLEMENTATION
     Route: 048
  7. BUDESONIDE [Concomitant]
     Dosage: 6 PUFF
     Route: 055
     Dates: start: 20100201
  8. CEFTRIAXONE [Concomitant]
     Route: 030
  9. RANITIDINE [Concomitant]
  10. LORATADINE [Concomitant]
     Route: 048
  11. IPRATROPIUM BROMIDE [Concomitant]
  12. SYNAGIS [Suspect]
     Route: 030
  13. ALBUTEROL [Concomitant]
     Route: 055
     Dates: start: 20100201

REACTIONS (8)
  - BRONCHIOLITIS [None]
  - DYSPNOEA [None]
  - DRUG INEFFECTIVE [None]
  - WHEEZING [None]
  - VOMITING [None]
  - COUGH [None]
  - DIARRHOEA [None]
  - FATIGUE [None]
